FAERS Safety Report 25640838 (Version 1)
Quarter: 2025Q3

REPORT INFORMATION
  Report Type: Spontaneous
  Country: US (occurrence: None)
  Receive Date: 20250802
  Receipt Date: 20250802
  Transmission Date: 20251021
  Serious: Yes (Other)
  Sender: FDA-CTU
  Company Number: None

PATIENT
  Age: 46 Year
  Sex: Male
  Weight: 67.5 kg

DRUGS (4)
  1. ROSUVASTATIN [Suspect]
     Active Substance: ROSUVASTATIN
     Indication: Blood cholesterol increased
     Dosage: OTHER QUANTITY : 1 TABLET(S);?FREQUENCY : DAILY;?
     Route: 048
     Dates: start: 20250617, end: 20250802
  2. ROSUVASTATIN [Suspect]
     Active Substance: ROSUVASTATIN
     Indication: Blood triglycerides increased
  3. Natural Factors OsteoMove Joint Care [Concomitant]
  4. NatureMade CholestOff [Concomitant]

REACTIONS (9)
  - Migraine [None]
  - Visual impairment [None]
  - Visual impairment [None]
  - Vision blurred [None]
  - Blindness transient [None]
  - Headache [None]
  - Fatigue [None]
  - Musculoskeletal stiffness [None]
  - Therapy cessation [None]

NARRATIVE: CASE EVENT DATE: 20250722
